FAERS Safety Report 11652343 (Version 1)
Quarter: 2015Q4

REPORT INFORMATION
  Report Type: Spontaneous
  Country: US (occurrence: None)
  Receive Date: 20151021
  Receipt Date: 20151021
  Transmission Date: 20160304
  Serious: No
  Sender: FDA-Public Use
  Company Number: None

PATIENT
  Age: 80 Year
  Sex: Female

DRUGS (1)
  1. SULFAZINE EC [Suspect]
     Active Substance: SULFASALAZINE
     Dosage: 1 OR 2 ?1AM + NOON, 2 PM ?ORAL
     Route: 048
     Dates: start: 20151001, end: 20151016

REACTIONS (2)
  - Dysgeusia [None]
  - Dizziness [None]

NARRATIVE: CASE EVENT DATE: 20151016
